FAERS Safety Report 16894988 (Version 1)
Quarter: 2019Q4

REPORT INFORMATION
  Report Type: Spontaneous
  Country: US (occurrence: US)
  Receive Date: 20191008
  Receipt Date: 20191008
  Transmission Date: 20200122
  Serious: Yes (Hospitalization)
  Sender: FDA-Public Use
  Company Number: US-INDIVIOR LIMITED-INDV-120422-2019

PATIENT
  Age: 27 Year
  Sex: Female

DRUGS (5)
  1. KLONOPIN [Concomitant]
     Active Substance: CLONAZEPAM
     Indication: PRODUCT USED FOR UNKNOWN INDICATION
     Dosage: UNK
     Route: 065
  2. SUBOXONE [Suspect]
     Active Substance: BUPRENORPHINE HYDROCHLORIDE\NALOXONE HYDROCHLORIDE
     Dosage: 8 MILLIGRAM, BID (ONCE IN THE MORNING AND ONCE IN THE NIGHT)
     Route: 065
  3. SUBOXONE [Suspect]
     Active Substance: BUPRENORPHINE HYDROCHLORIDE\NALOXONE HYDROCHLORIDE
     Dosage: UNK (INCREASING HER DOSE)
     Route: 065
  4. SUBOXONE [Suspect]
     Active Substance: BUPRENORPHINE HYDROCHLORIDE\NALOXONE HYDROCHLORIDE
     Indication: DRUG DEPENDENCE
     Dosage: 8 MILLIGRAM, BID (ONCE IN THE MORNING AND ONCE IN THE NIGHT)
     Route: 065
  5. VALIUM [Concomitant]
     Active Substance: DIAZEPAM
     Indication: PRODUCT USED FOR UNKNOWN INDICATION
     Dosage: UNK
     Route: 065

REACTIONS (11)
  - Aggression [Not Recovered/Not Resolved]
  - Vein collapse [Not Recovered/Not Resolved]
  - Drug detoxification [Recovered/Resolved]
  - Therapeutic response shortened [Unknown]
  - Intentional product use issue [Unknown]
  - Hyperhidrosis [Not Recovered/Not Resolved]
  - Pallor [Not Recovered/Not Resolved]
  - Impaired driving ability [Unknown]
  - Periorbital swelling [Not Recovered/Not Resolved]
  - Road traffic accident [Recovered/Resolved]
  - Inappropriate schedule of product administration [Not Recovered/Not Resolved]

NARRATIVE: CASE EVENT DATE: 201906
